FAERS Safety Report 4659276-8 (Version None)
Quarter: 2005Q2

REPORT INFORMATION
  Report Type: 
  Country: None (occurrence: None)
  Receive Date: 20050510
  Receipt Date: 20050428
  Transmission Date: 20051028
  Serious: Yes (Other)
  Sender: FDA-Public Use
  Company Number: 2005-00917

PATIENT
  Age: 78 Year
  Sex: Male

DRUGS (1)
  1. VELCADE [Suspect]
     Indication: MULTIPLE MYELOMA
     Dosage: INTRAVENOUS
     Route: 042

REACTIONS (4)
  - CHILLS [None]
  - ERYTHROBLAST COUNT INCREASED [None]
  - SERUM FERRITIN INCREASED [None]
  - SOMNOLENCE [None]
